FAERS Safety Report 12243691 (Version 1)
Quarter: 2016Q2

REPORT INFORMATION
  Report Type: Spontaneous
  Country: CH (occurrence: CH)
  Receive Date: 20160406
  Receipt Date: 20160406
  Transmission Date: 20160815
  Serious: Yes (Hospitalization)
  Sender: FDA-Public Use
  Company Number: CH-SA-2016SA065731

PATIENT
  Age: 86 Year
  Sex: Female

DRUGS (9)
  1. MAGNESIOCARD [Concomitant]
     Active Substance: MAGNESIUM ASPARTATE HYDROCHLORIDE
     Dosage: GRANULATE
  2. NEURONTIN [Concomitant]
     Active Substance: GABAPENTIN
  3. SYMBICORT [Concomitant]
     Active Substance: BUDESONIDE\FORMOTEROL FUMARATE DIHYDRATE
     Dosage: POWDER FOR INHALATION 0.2+0.006 MG/DOSE
  4. PLAVIX [Suspect]
     Active Substance: CLOPIDOGREL BISULFATE
     Route: 048
     Dates: end: 20151223
  5. PLAVIX [Suspect]
     Active Substance: CLOPIDOGREL BISULFATE
     Route: 048
  6. SAROTEN RETARD [Concomitant]
     Active Substance: AMITRIPTYLINE
     Dosage: PROLONGED-RELEASE CAPSULES
     Route: 048
  7. NOVALGIN [Concomitant]
     Active Substance: METAMIZOLE SODIUM
  8. ESOMEP [Concomitant]
     Active Substance: ESOMEPRAZOLE
     Route: 048
  9. EXFORGE HCT [Concomitant]
     Active Substance: AMLODIPINE BESYLATE\HYDROCHLOROTHIAZIDE\VALSARTAN
     Dosage: 1DF= 5MG AMLODIPIN, 160MG VALSARTAN, 25MG HYDROCLOROTHIAZID

REACTIONS (5)
  - Melaena [Recovered/Resolved]
  - Syncope [Recovered/Resolved]
  - Asthenia [Recovered/Resolved]
  - Gastrointestinal haemorrhage [Recovered/Resolved]
  - Haematemesis [Recovered/Resolved]

NARRATIVE: CASE EVENT DATE: 20151222
